FAERS Safety Report 11575658 (Version 1)
Quarter: 2015Q3

REPORT INFORMATION
  Report Type: Spontaneous
  Country: US (occurrence: US)
  Receive Date: 20150916
  Receipt Date: 20150916
  Transmission Date: 20151125
  Serious: No
  Sender: FDA-Public Use
  Company Number: US-ELI_LILLY_AND_COMPANY-US200907006235

PATIENT
  Age: 77 Year
  Sex: Female
  Weight: 47.17 kg

DRUGS (3)
  1. CALCIUM [Concomitant]
     Active Substance: CALCIUM
     Dosage: 1200 DF, UNKNOWN
  2. FORTEO [Suspect]
     Active Substance: TERIPARATIDE
     Indication: OSTEOPOROSIS
     Dosage: UNK, UNK
     Dates: start: 20090719
  3. VITAMIN D                          /00107901/ [Concomitant]
     Active Substance: ERGOCALCIFEROL
     Dosage: 1000 DF, UNKNOWN

REACTIONS (8)
  - Blood calcium increased [Recovered/Resolved]
  - Hypertension [Recovered/Resolved]
  - Injection site bruising [Unknown]
  - Malaise [Recovered/Resolved]
  - Dizziness [Unknown]
  - Dry mouth [Unknown]
  - Pain [Not Recovered/Not Resolved]
  - Headache [Recovered/Resolved]

NARRATIVE: CASE EVENT DATE: 2009
